FAERS Safety Report 4387469-6 (Version None)
Quarter: 2004Q2

REPORT INFORMATION
  Report Type: 
  Country: None (occurrence: None)
  Receive Date: 20040630
  Receipt Date: 20040211
  Transmission Date: 20050107
  Serious: No
  Sender: FDA-Public Use
  Company Number: US-BRISTOL-MYERS SQUIBB COMPANY-12558219

PATIENT
  Age: 43 Year
  Sex: Male

DRUGS (11)
  1. ATAZANAVIR [Suspect]
     Indication: HIV INFECTION
     Route: 048
  2. NORVIR [Suspect]
     Indication: HIV INFECTION
     Route: 048
  3. DIDANOSINE [Concomitant]
     Indication: HIV INFECTION
     Route: 048
  4. TENOFOVIR DF [Concomitant]
     Indication: HIV INFECTION
     Route: 048
  5. LAMIVUDINE + ZIDOVUDINE [Concomitant]
     Indication: HIV INFECTION
     Route: 048
  6. LEVOCARNITINE [Concomitant]
     Route: 048
  7. OXANDROLONE [Concomitant]
     Route: 048
  8. TESTOSTERONE [Concomitant]
     Route: 061
  9. TRAZODONE HCL [Concomitant]
     Route: 048
  10. ZOLPIDEM [Concomitant]
     Route: 048
  11. BUPROPION HCL [Concomitant]
     Route: 048

REACTIONS (1)
  - JAUNDICE [None]
